FAERS Safety Report 9201791 (Version 1)
Quarter: 2013Q2

REPORT INFORMATION
  Report Type: Spontaneous
  Country: US (occurrence: US)
  Receive Date: 20130401
  Receipt Date: 20130401
  Transmission Date: 20140414
  Serious: Yes (Death)
  Sender: FDA-Public Use
  Company Number: US-ASTRAZENECA-2013SE20638

PATIENT
  Age: 54 Year
  Sex: Male

DRUGS (2)
  1. ATACAND HCT [Suspect]
     Route: 048
  2. SYMBICORT PMDI [Suspect]
     Dosage: ON UNKNOWN FREQUENCY
     Route: 055

REACTIONS (1)
  - Death [Fatal]
